FAERS Safety Report 19771650 (Version 1)
Quarter: 2021Q3

REPORT INFORMATION
  Report Type: Spontaneous
  Country: US (occurrence: US)
  Receive Date: 20210901
  Receipt Date: 20210901
  Transmission Date: 20211014
  Serious: No
  Sender: FDA-Public Use
  Company Number: US-PFIZER INC-2020154948

PATIENT
  Age: 70 Year
  Sex: Male
  Weight: 75.75 kg

DRUGS (2)
  1. CHANTIX [Suspect]
     Active Substance: VARENICLINE TARTRATE
     Indication: SMOKING CESSATION THERAPY
     Dosage: 2 DF, DAILY (STARTED WITH STARTER PACK, 2 PILLS A DAY FOR 30 DAYS AND THEN WENT UP TO 1 PILL A DAY)
  2. CHANTIX [Suspect]
     Active Substance: VARENICLINE TARTRATE
     Dosage: 1 DF, DAILY (STARTED WITH STARTER PACK, 2 PILLS A DAY FOR 30 DAYS AND THEN WENT UP TO 1 PILL A DAY)

REACTIONS (4)
  - Abdominal pain upper [Unknown]
  - Off label use [Unknown]
  - Malaise [Unknown]
  - Product use issue [Unknown]
